FAERS Safety Report 13897754 (Version 1)
Quarter: 2017Q3

REPORT INFORMATION
  Report Type: Spontaneous
  Country: ID (occurrence: ID)
  Receive Date: 20170823
  Receipt Date: 20170823
  Transmission Date: 20171127
  Serious: Yes (Death, Life-Threatening)
  Sender: FDA-Public Use
  Company Number: ID-ASTRAZENECA-2017SE84813

PATIENT
  Age: 64 Year
  Sex: Male

DRUGS (4)
  1. HEPARIN [Suspect]
     Active Substance: HEPARIN SODIUM
     Indication: ACUTE MYOCARDIAL INFARCTION
     Dosage: 15000.0IU UNKNOWN
     Route: 041
  2. HEPARIN [Suspect]
     Active Substance: HEPARIN SODIUM
     Indication: ACUTE MYOCARDIAL INFARCTION
     Dosage: 3000-4000 INTERNATIONAL UNIT  UNKNOWN
     Route: 040
  3. BRILINTA [Suspect]
     Active Substance: TICAGRELOR
     Indication: ACUTE MYOCARDIAL INFARCTION
     Route: 048
  4. BRILINTA [Suspect]
     Active Substance: TICAGRELOR
     Indication: ACUTE MYOCARDIAL INFARCTION
     Dosage: 180.0MG UNKNOWN
     Route: 048

REACTIONS (3)
  - Haemorrhagic stroke [Fatal]
  - Chest pain [Fatal]
  - Brain herniation [Fatal]

NARRATIVE: CASE EVENT DATE: 20170815
